FAERS Safety Report 17195077 (Version 1)
Quarter: 2019Q4

REPORT INFORMATION
  Report Type: Spontaneous
  Country: IR (occurrence: IR)
  Receive Date: 20191224
  Receipt Date: 20191224
  Transmission Date: 20200122
  Serious: Yes (Hospitalization)
  Sender: FDA-Public Use
  Company Number: IR-UNICHEM PHARMACEUTICALS (USA) INC-UCM201912-000914

PATIENT
  Age: 42 Year
  Sex: Male

DRUGS (1)
  1. TADALAFIL. [Suspect]
     Active Substance: TADALAFIL
     Indication: ERECTILE DYSFUNCTION

REACTIONS (1)
  - Pancreatitis acute [Recovered/Resolved]
